FAERS Safety Report 5935045-3 (Version None)
Quarter: 2008Q4

REPORT INFORMATION
  Report Type: 
  Country: None (occurrence: None)
  Receive Date: 20081030
  Receipt Date: 20081020
  Transmission Date: 20090506
  Serious: Yes (Hospitalization, Other)
  Sender: FDA-Public Use
  Company Number: US-BAYER-200717250NA

PATIENT
  Age: 27 Year
  Sex: Female
  Weight: 76 kg

DRUGS (5)
  1. MIRENA [Suspect]
     Indication: CONTRACEPTION
     Route: 015
     Dates: start: 20071016, end: 20071126
  2. XANAX [Concomitant]
     Indication: DEPRESSION
     Dates: start: 20071229
  3. SEROQUEL [Concomitant]
     Indication: DEPRESSION
     Dates: start: 20071229
  4. KLONOPIN [Concomitant]
     Indication: DRUG USE FOR UNKNOWN INDICATION
  5. ZOLOFT [Concomitant]
     Indication: DRUG USE FOR UNKNOWN INDICATION

REACTIONS (24)
  - ABDOMINAL PAIN LOWER [None]
  - AFFECT LABILITY [None]
  - ANXIETY [None]
  - BACK PAIN [None]
  - CHEST PAIN [None]
  - CHILLS [None]
  - DEPRESSED MOOD [None]
  - DEPRESSION [None]
  - DIZZINESS [None]
  - DYSPNOEA [None]
  - FLANK PAIN [None]
  - HOT FLUSH [None]
  - HYPOAESTHESIA [None]
  - IMPAIRED WORK ABILITY [None]
  - MENORRHAGIA [None]
  - NAUSEA [None]
  - NERVOUSNESS [None]
  - PALPITATIONS [None]
  - PANIC DISORDER [None]
  - SUICIDAL IDEATION [None]
  - SYNCOPE [None]
  - TACHYCARDIA [None]
  - VAGINAL HAEMORRHAGE [None]
  - WEIGHT DECREASED [None]
